FAERS Safety Report 21689894 (Version 1)
Quarter: 2022Q4

REPORT INFORMATION
  Report Type: Spontaneous
  Country: FR (occurrence: FR)
  Receive Date: 20221206
  Receipt Date: 20221206
  Transmission Date: 20230113
  Serious: Yes (Life-Threatening)
  Sender: FDA-Public Use
  Company Number: None

PATIENT
  Age: 29 Year
  Sex: Male

DRUGS (3)
  1. KETOPROFEN [Suspect]
     Active Substance: KETOPROFEN
     Indication: Procedural pain
     Dosage: 1 DOSAGE FORM, QD
     Route: 048
     Dates: start: 2012, end: 2012
  2. PANTOPRAZOLE [Concomitant]
     Active Substance: PANTOPRAZOLE
     Dosage: UNK
     Route: 065
  3. TRAMADOL HYDROCHLORIDE [Concomitant]
     Active Substance: TRAMADOL HYDROCHLORIDE
     Dosage: UNK
     Route: 065

REACTIONS (4)
  - Dyspnoea [Recovered/Resolved]
  - Laryngeal oedema [Recovered/Resolved]
  - Dysphonia [Recovered/Resolved]
  - Lip oedema [Recovered/Resolved]

NARRATIVE: CASE EVENT DATE: 20120101
